FAERS Safety Report 23262990 (Version 1)
Quarter: 2023Q4

REPORT INFORMATION
  Report Type: Spontaneous
  Country: US (occurrence: None)
  Receive Date: 20231204
  Receipt Date: 20231204
  Transmission Date: 20240109
  Serious: Yes (Hospitalization)
  Sender: FDA-Public Use
  Company Number: None

PATIENT
  Age: 51 Year
  Sex: Male

DRUGS (16)
  1. AMBRISENTAN [Suspect]
     Active Substance: AMBRISENTAN
     Indication: Pulmonary hypertension
     Dosage: FREQUENCY : DAILY;?
     Route: 048
     Dates: start: 20230104
  2. SILDENAFIL [Concomitant]
  3. TADALAFIL [Concomitant]
  4. SELEXIPAG [Concomitant]
  5. DIGOXIN [Concomitant]
  6. JARDIANCE [Concomitant]
     Active Substance: EMPAGLIFLOZIN
  7. HUMULIN N [Concomitant]
     Active Substance: INSULIN HUMAN
  8. OZEMPIC [Concomitant]
  9. TORSEMIDE [Concomitant]
     Active Substance: TORSEMIDE
  10. METFORMIN [Concomitant]
     Active Substance: METFORMIN HYDROCHLORIDE
  11. METOLAZONE [Concomitant]
     Active Substance: METOLAZONE
  12. FLONASE [Concomitant]
  13. ACETAZOLAMIDE [Concomitant]
     Active Substance: ACETAZOLAMIDE
  14. LISINOPRIL [Concomitant]
  15. ALBUTEROL HFA [Concomitant]
  16. GABAPENTIN [Concomitant]

REACTIONS (4)
  - Lethargy [None]
  - Treatment noncompliance [None]
  - Dyspnoea [None]
  - Positive airway pressure therapy [None]

NARRATIVE: CASE EVENT DATE: 20231121
